FAERS Safety Report 24862714 (Version 1)
Quarter: 2025Q1

REPORT INFORMATION
  Report Type: Report from Study
  Country: ZA (occurrence: ZA)
  Receive Date: 20250120
  Receipt Date: 20250120
  Transmission Date: 20250408
  Serious: Yes (Hospitalization, Other)
  Sender: ALEXION PHARMACEUTICALS
  Company Number: ZA-AstraZeneca-CH-00786445A

PATIENT
  Age: 57 Year

DRUGS (8)
  1. DAPAGLIFLOZIN [Suspect]
     Active Substance: DAPAGLIFLOZIN
     Indication: Diabetes mellitus
  2. ISMO [Concomitant]
     Active Substance: ISOSORBIDE MONONITRATE
     Indication: Angina pectoris
  3. Uromax [Concomitant]
     Indication: Prostatomegaly
  4. ECOTRIN [Concomitant]
     Active Substance: ASPIRIN
  5. FOSFOMYCIN TROMETHAMINE [Concomitant]
     Active Substance: FOSFOMYCIN TROMETHAMINE
  6. Cyfil [Concomitant]
     Indication: Erectile dysfunction
  7. METFORMIN HYDROCHLORIDE\VILDAGLIPTIN [Concomitant]
     Active Substance: METFORMIN HYDROCHLORIDE\VILDAGLIPTIN
     Indication: Diabetes mellitus
  8. FERROUS BISGLYCINATE\FOLIC ACID [Concomitant]
     Active Substance: FERROUS BISGLYCINATE\FOLIC ACID

REACTIONS (1)
  - Spinal compression fracture [Unknown]
